FAERS Safety Report 23210678 (Version 1)
Quarter: 2023Q4

REPORT INFORMATION
  Report Type: Spontaneous
  Country: US (occurrence: None)
  Receive Date: 20231120
  Receipt Date: 20231120
  Transmission Date: 20240110
  Serious: No
  Sender: FDA-Public Use
  Company Number: None

PATIENT
  Sex: Female

DRUGS (1)
  1. COSENTYX [Suspect]
     Active Substance: SECUKINUMAB
     Indication: Psoriasis
     Dosage: 300 MG SUBCUTANEOUS EVERY 4 WEEKS
     Route: 058
     Dates: start: 202308

REACTIONS (3)
  - Drug ineffective [None]
  - Weight increased [None]
  - Injection site bruising [None]
